FAERS Safety Report 8584530-7 (Version None)
Quarter: 2012Q3

REPORT INFORMATION
  Report Type: 
  Country: None (occurrence: None)
  Receive Date: 20120730
  Receipt Date: 20120718
  Transmission Date: 20120928
  Serious: Yes (Hospitalization, Other)
  Sender: FDA-Public Use
  Company Number: HA12-210-AE

PATIENT
  Age: 46 Year
  Sex: Female
  Weight: 68.9467 kg

DRUGS (10)
  1. NAPROXEN [Suspect]
     Indication: ARTHRITIS
     Dosage: 1 TABLET BID, ORAL
     Route: 048
     Dates: start: 20120101
  2. GEMFIBROZIL [Concomitant]
  3. HYDROCODONE BITARTRATE [Concomitant]
  4. CHLORTHALIDONE [Concomitant]
  5. VENLAFAXINE HYDROCHOLRIDE [Concomitant]
  6. ACETAMINOPHEN [Concomitant]
  7. CYCLOBENZAPRINE HCL [Concomitant]
  8. NEURONTIN [Concomitant]
  9. DILTIAZEM [Concomitant]
  10. CLONAZEPAM [Concomitant]

REACTIONS (14)
  - MYOCARDIAL INFARCTION [None]
  - SLEEP DISORDER [None]
  - HIGH DENSITY LIPOPROTEIN DECREASED [None]
  - INTESTINAL HAEMORRHAGE [None]
  - ANXIETY [None]
  - FALL [None]
  - CONDITION AGGRAVATED [None]
  - CARDIAC DISORDER [None]
  - DYSPEPSIA [None]
  - HYSTERECTOMY [None]
  - DEPRESSION [None]
  - TREATMENT NONCOMPLIANCE [None]
  - LOW DENSITY LIPOPROTEIN INCREASED [None]
  - EPISTAXIS [None]
